APPROVED DRUG PRODUCT: PCE
Active Ingredient: ERYTHROMYCIN
Strength: 500MG
Dosage Form/Route: TABLET, COATED PARTICLES;ORAL
Application: N050611 | Product #002
Applicant: AZURITY PHARMACEUTICALS INC
Approved: Aug 22, 1990 | RLD: Yes | RS: No | Type: DISCN